FAERS Safety Report 15352561 (Version 1)
Quarter: 2018Q3

REPORT INFORMATION
  Report Type: Spontaneous
  Country: ES (occurrence: ES)
  Receive Date: 20180905
  Receipt Date: 20180905
  Transmission Date: 20181010
  Serious: Yes (Hospitalization)
  Sender: FDA-Public Use
  Company Number: PHHY2018ES089259

PATIENT
  Age: 68 Year
  Sex: Male

DRUGS (6)
  1. ACIDO FOLICO [Concomitant]
     Active Substance: CYANOCOBALAMIN\FOLIC ACID\PYRIDOXINE HYDROCHLORIDE
     Indication: SENSORY DISTURBANCE
     Dosage: 1 DF, QD (1 UG/LITRE)
     Route: 048
     Dates: start: 20180710
  2. ATORVASTATIN [Suspect]
     Active Substance: ATORVASTATIN
     Indication: DYSLIPIDAEMIA
     Dosage: 40 MG, QD
     Route: 048
     Dates: start: 20180322, end: 20180808
  3. OMEPRAZOL [Concomitant]
     Active Substance: OMEPRAZOLE
     Indication: CEREBRAL INFARCTION
     Dosage: 1 DF, QD (1 UG/LITRE)
     Route: 048
     Dates: start: 20180322
  4. OMEPRAZOL [Concomitant]
     Active Substance: OMEPRAZOLE
     Indication: CEREBRAL ARTERY OCCLUSION
  5. ASPIRIN. [Concomitant]
     Active Substance: ASPIRIN
     Indication: CEREBRAL ARTERY OCCLUSION
     Dosage: 1 DF, QD (1 UG/LITRE)
     Route: 048
     Dates: start: 20180323
  6. ASPIRIN. [Concomitant]
     Active Substance: ASPIRIN
     Indication: CEREBRAL INFARCTION

REACTIONS (1)
  - Cholestasis [Recovering/Resolving]

NARRATIVE: CASE EVENT DATE: 20180807
